FAERS Safety Report 25278246 (Version 1)
Quarter: 2025Q2

REPORT INFORMATION
  Report Type: Spontaneous
  Country: GT (occurrence: GT)
  Receive Date: 20250507
  Receipt Date: 20250507
  Transmission Date: 20250716
  Serious: Yes (Hospitalization)
  Sender: JOHNSON AND JOHNSON
  Company Number: GT-JNJFOC-20250500584

PATIENT

DRUGS (1)
  1. TECVAYLI [Suspect]
     Active Substance: TECLISTAMAB-CQYV
     Indication: Product used for unknown indication
     Route: 065
     Dates: start: 2025

REACTIONS (2)
  - Encephalitis cytomegalovirus [Unknown]
  - Urinary tract infection [Unknown]
